FAERS Safety Report 9290814 (Version 1)
Quarter: 2013Q2

REPORT INFORMATION
  Report Type: Spontaneous
  Country: ES (occurrence: ES)
  Receive Date: 20130515
  Receipt Date: 20130515
  Transmission Date: 20140414
  Serious: Yes (Death)
  Sender: FDA-Public Use
  Company Number: ES-BAXTER-2013BAX017566

PATIENT
  Age: 10 Year
  Sex: Male
  Weight: 39 kg

DRUGS (3)
  1. GENOXAL 200 MG INYECTABLE [Suspect]
     Indication: ACUTE LYMPHOCYTIC LEUKAEMIA
     Route: 042
     Dates: start: 20111125, end: 20111128
  2. CELLTOP_ETOPOSIDE 20.00 MG/ML_SOLUTION FOR INJECTION_VIAL, GLASS [Suspect]
     Indication: ACUTE LYMPHOCYTIC LEUKAEMIA
     Route: 042
     Dates: start: 20111125, end: 20111128
  3. EVOLTRA 1 MG/ML CONCENTRADO PARA SOLUCION PARA PERFUSION, 1 VIAL DE 20 [Suspect]
     Indication: ACUTE LYMPHOCYTIC LEUKAEMIA
     Route: 042
     Dates: start: 20111125, end: 20111129

REACTIONS (1)
  - Systemic inflammatory response syndrome [Fatal]
